FAERS Safety Report 9853353 (Version 1)
Quarter: 2014Q1

REPORT INFORMATION
  Report Type: Spontaneous
  Country: FR (occurrence: FR)
  Receive Date: 20140129
  Receipt Date: 20140129
  Transmission Date: 20141002
  Serious: Yes (Hospitalization)
  Sender: FDA-Public Use
  Company Number: PHHY2014FR008894

PATIENT
  Age: 87 Year
  Sex: Male

DRUGS (7)
  1. BISOPROLOL SANDOZ [Suspect]
     Indication: HYPERTENSION
     Dosage: 5 MG, QD
     Route: 048
     Dates: start: 200601, end: 20080414
  2. RAMIPRIL WINTHROP [Concomitant]
     Dosage: 5 MG, QD
  3. FUROSEMIDE SANDOZ [Concomitant]
     Indication: HYPERTENSION
     Route: 048
  4. AMLODIPINE SANDOZ [Concomitant]
     Indication: HYPERTENSION
     Dosage: 10 MG, QD
     Route: 048
  5. OMEPRAZOLE SANDOZ [Concomitant]
     Indication: PRODUCT USED FOR UNKNOWN INDICATION
     Dosage: 20 MG, QD
     Route: 048
     Dates: start: 200712
  6. ALFUZOSINE WINTHROP [Concomitant]
     Indication: BENIGN PROSTATIC HYPERPLASIA
     Dosage: 10 MG, QID
     Route: 048
     Dates: start: 200706
  7. AVODART [Concomitant]
     Indication: PRODUCT USED FOR UNKNOWN INDICATION

REACTIONS (4)
  - Malaise [Recovered/Resolved]
  - Palpitations [Recovered/Resolved]
  - Atrial fibrillation [Recovered/Resolved]
  - Bradyarrhythmia [Recovered/Resolved]
